FAERS Safety Report 5241142-0 (Version None)
Quarter: 2007Q1

REPORT INFORMATION
  Report Type: 
  Country: None (occurrence: None)
  Receive Date: 20070220
  Receipt Date: 20070207
  Transmission Date: 20070707
  Serious: Yes (Hospitalization)
  Sender: FDA-Public Use
  Company Number: CA-JNJFOC-20070201953

PATIENT
  Sex: Female

DRUGS (3)
  1. REMICADE [Suspect]
     Indication: DRUG USE FOR UNKNOWN INDICATION
     Route: 042
  2. BENADRYL [Concomitant]
     Indication: PREMEDICATION
     Route: 048
  3. SOLU-CORTEF [Concomitant]
     Indication: PREMEDICATION
     Route: 042

REACTIONS (5)
  - CONDITION AGGRAVATED [None]
  - DYSPNOEA [None]
  - INFUSION RELATED REACTION [None]
  - NAUSEA [None]
  - VOMITING [None]
